FAERS Safety Report 9175347 (Version 1)
Quarter: 2013Q1

REPORT INFORMATION
  Report Type: Report from Study
  Country: US (occurrence: US)
  Receive Date: 20130320
  Receipt Date: 20130320
  Transmission Date: 20140127
  Serious: Yes (Other)
  Sender: FDA-Public Use
  Company Number: US-MYLANLABS-2013S1005588

PATIENT
  Sex: Female

DRUGS (7)
  1. AMNESTEEM CAPSULES [Suspect]
     Indication: ACNE CYSTIC
     Route: 048
     Dates: start: 201209, end: 201303
  2. CLARAVIS [Suspect]
     Indication: ACNE CYSTIC
  3. LAMICTAL [Concomitant]
     Route: 048
  4. DEXEDRINE [Concomitant]
     Route: 048
  5. LITHIUM [Concomitant]
     Route: 048
  6. PROZAC [Concomitant]
     Route: 048
  7. AMBIEN CR [Concomitant]
     Route: 048

REACTIONS (2)
  - Suicidal ideation [Not Recovered/Not Resolved]
  - Depression [Not Recovered/Not Resolved]
